FAERS Safety Report 8476255-3 (Version None)
Quarter: 2012Q2

REPORT INFORMATION
  Report Type: 
  Country: None (occurrence: None)
  Receive Date: 20120628
  Receipt Date: 20120620
  Transmission Date: 20120825
  Serious: Yes (Other)
  Sender: FDA-Public Use
  Company Number: US-MPIJNJ-2012-04409

PATIENT
  Sex: Female

DRUGS (1)
  1. VELCADE [Suspect]
     Indication: MULTIPLE MYELOMA
     Dosage: UNK
     Route: 058
     Dates: start: 20120601

REACTIONS (6)
  - PAIN [None]
  - COOMBS TEST POSITIVE [None]
  - PROTEIN TOTAL INCREASED [None]
  - BLOOD VISCOSITY INCREASED [None]
  - CONSTIPATION [None]
  - FATIGUE [None]
